FAERS Safety Report 6253027-1 (Version None)
Quarter: 2009Q2

REPORT INFORMATION
  Report Type: 
  Country: None (occurrence: None)
  Receive Date: 20090629
  Receipt Date: 20090615
  Transmission Date: 20091009
  Serious: Yes (Death, Other)
  Sender: FDA-Public Use
  Company Number: 82561

PATIENT
  Age: 24 Year
  Sex: Female

DRUGS (3)
  1. PROPOFOL [Suspect]
  2. ANESTHESIA [Concomitant]
  3. ANALGESIA [Concomitant]

REACTIONS (4)
  - HAEMORRHAGE SUBCUTANEOUS [None]
  - OVERDOSE [None]
  - VICTIM OF HOMICIDE [None]
  - WOUND [None]
